FAERS Safety Report 6306693-6 (Version None)
Quarter: 2009Q3

REPORT INFORMATION
  Report Type: 
  Country: None (occurrence: None)
  Receive Date: 20090812
  Receipt Date: 20090706
  Transmission Date: 20100115
  Serious: Yes (Other)
  Sender: FDA-Public Use
  Company Number: US-TEVA-200446USA

PATIENT
  Sex: Female
  Weight: 65.83 kg

DRUGS (1)
  1. PLAN B [Suspect]
     Indication: POST COITAL CONTRACEPTION
     Route: 048
     Dates: start: 20090608, end: 20090608

REACTIONS (5)
  - ABORTION SPONTANEOUS [None]
  - DIZZINESS [None]
  - DRUG INEFFECTIVE [None]
  - PELVIC PAIN [None]
  - PREGNANCY AFTER POST COITAL CONTRACEPTION [None]
